FAERS Safety Report 4822406-9 (Version None)
Quarter: 2005Q4

REPORT INFORMATION
  Report Type: 
  Country: None (occurrence: None)
  Receive Date: 20051104
  Receipt Date: 20051017
  Transmission Date: 20060501
  Serious: Yes (Other)
  Sender: FDA-Public Use
  Company Number: FRWYE064618OCT05

PATIENT
  Age: 53 Year
  Sex: Female

DRUGS (3)
  1. EFFEXOR [Suspect]
     Indication: DEPRESSION
     Dosage: PROGRESSIVELY INCREASED UP TO 150 MG DAILY ORAL
     Route: 048
     Dates: start: 20050912
  2. BISOPROLOL FUMARATE AND HYDROCHLOROTHIAZIDE [Concomitant]
  3. PRAZEPAM [Concomitant]

REACTIONS (5)
  - ASTHENIA [None]
  - CONCOMITANT DISEASE AGGRAVATED [None]
  - DUBIN-JOHNSON SYNDROME [None]
  - MIGRAINE [None]
  - NAUSEA [None]
